FAERS Safety Report 20753817 (Version 2)
Quarter: 2023Q2

REPORT INFORMATION
  Report Type: Spontaneous
  Country: US (occurrence: None)
  Receive Date: 20220426
  Receipt Date: 20230420
  Transmission Date: 20230722
  Serious: No
  Sender: FDA-Public Use
  Company Number: US-ROCHE-2958525

PATIENT
  Sex: Male

DRUGS (22)
  1. ESBRIET [Suspect]
     Active Substance: PIRFENIDONE
     Indication: Pulmonary fibrosis
     Dosage: TAKE 3 CAPSULES BY MOUTH THREE TIMES A DAY
     Route: 048
     Dates: start: 20161221
  2. ESBRIET [Suspect]
     Active Substance: PIRFENIDONE
     Dosage: TAKE 3 CAPSULES BY MOUTH THREE TIMES A DAY
     Route: 048
  3. METOCLOPRAMIDE [Concomitant]
     Active Substance: METOCLOPRAMIDE
  4. PAROXETINE [Concomitant]
     Active Substance: PAROXETINE
  5. ATIVAN [Concomitant]
     Active Substance: LORAZEPAM
  6. CALCIUM CARBONATE\VITAMIN D [Concomitant]
     Active Substance: CALCIUM CARBONATE\VITAMIN D
  7. FLUTICASONE [Concomitant]
     Active Substance: FLUTICASONE
     Dosage: SPR, 50 MCG
  8. GABAPENTIN [Concomitant]
     Active Substance: GABAPENTIN
  9. LOSARTAN POTASSIUM [Concomitant]
     Active Substance: LOSARTAN POTASSIUM
  10. MONTELUKAST [Concomitant]
     Active Substance: MONTELUKAST SODIUM
  11. MUCINEX [Concomitant]
     Active Substance: GUAIFENESIN
     Dosage: MIS DAY/NIGHT
  12. NAPROXEN SODIUM [Concomitant]
     Active Substance: NAPROXEN SODIUM
     Dosage: POW
  13. OMEPRAZOLE [Concomitant]
     Active Substance: OMEPRAZOLE
  14. ONDANSETRON [Concomitant]
     Active Substance: ONDANSETRON
     Dosage: INJ SODIUM
  15. PRED FORTE [Concomitant]
     Active Substance: PREDNISOLONE ACETATE
     Dosage: SUS 1%
  16. PSEUDOEPHEDRINE [Concomitant]
     Active Substance: PSEUDOEPHEDRINE
  17. SENNA PLUS [Concomitant]
     Active Substance: DOCUSATE SODIUM\SENNOSIDES\SENNOSIDES A AND B
     Dosage: 8.6-50 MG
  18. TAMSULOSIN [Concomitant]
     Active Substance: TAMSULOSIN
  19. TRAMADOL [Concomitant]
     Active Substance: TRAMADOL
  20. VICTOZA [Concomitant]
     Active Substance: LIRAGLUTIDE
     Dosage: 18 MG/3 ML
  21. VITAMIN B12 [Concomitant]
     Active Substance: CYANOCOBALAMIN
  22. ZINC [Concomitant]
     Active Substance: ZINC

REACTIONS (1)
  - Memory impairment [Unknown]
